FAERS Safety Report 13438306 (Version 1)
Quarter: 2017Q2

REPORT INFORMATION
  Report Type: Spontaneous
  Country: IT (occurrence: IT)
  Receive Date: 20170413
  Receipt Date: 20170413
  Transmission Date: 20170830
  Serious: Yes (Hospitalization)
  Sender: FDA-Public Use
  Company Number: IT-ELI_LILLY_AND_COMPANY-IT201704002385

PATIENT
  Age: 54 Year
  Sex: Female

DRUGS (9)
  1. METFORMIN [Concomitant]
     Active Substance: METFORMIN HYDROCHLORIDE
     Dosage: UNK, UNKNOWN
     Route: 048
  2. LARGACTIL                          /00011901/ [Concomitant]
     Active Substance: CHLORPROMAZINE
     Dosage: UNK, UNKNOWN
     Route: 048
  3. SINVACOR [Concomitant]
     Active Substance: SIMVASTATIN
     Dosage: UNK, UNKNOWN
     Route: 048
  4. TRITTICO [Suspect]
     Active Substance: TRAZODONE HYDROCHLORIDE
     Indication: PRODUCT USED FOR UNKNOWN INDICATION
     Dosage: UNK, UNKNOWN
     Route: 048
     Dates: start: 20170201, end: 20170201
  5. DELORAZEPAM [Suspect]
     Active Substance: DELORAZEPAM
     Indication: PRODUCT USED FOR UNKNOWN INDICATION
     Dosage: UNK UNK, UNKNOWN
     Route: 048
     Dates: start: 20170201, end: 20170201
  6. ZARELIS [Concomitant]
     Active Substance: VENLAFAXINE HYDROCHLORIDE
     Dosage: UNK, UNKNOWN
     Route: 048
  7. OLANZAPINE. [Suspect]
     Active Substance: OLANZAPINE
     Indication: PRODUCT USED FOR UNKNOWN INDICATION
     Dosage: UNK UNK, UNKNOWN
     Route: 048
     Dates: start: 20170201, end: 20170201
  8. LORAZEPAM. [Concomitant]
     Active Substance: LORAZEPAM
     Dosage: UNK, UNKNOWN
     Route: 048
  9. BRINTELLIX [Concomitant]
     Active Substance: VORTIOXETINE HYDROBROMIDE
     Dosage: UNK, UNKNOWN
     Route: 048

REACTIONS (3)
  - Electrocardiogram QT prolonged [Unknown]
  - Toxicity to various agents [Unknown]
  - Drug use disorder [Unknown]

NARRATIVE: CASE EVENT DATE: 20170201
